FAERS Safety Report 4854438-9 (Version None)
Quarter: 2005Q4

REPORT INFORMATION
  Report Type: 
  Country: None (occurrence: None)
  Receive Date: 20051214
  Receipt Date: 20051214
  Transmission Date: 20060501
  Serious: No
  Sender: FDA-Public Use
  Company Number: None

PATIENT
  Age: 55 Year
  Sex: Male
  Weight: 124.1 kg

DRUGS (1)
  1. QUETIAPINE FUMARATE [Suspect]
     Indication: POST-TRAUMATIC STRESS DISORDER
     Dosage: 75 MG DAILY PO
     Route: 048
     Dates: start: 20050308, end: 20050722

REACTIONS (1)
  - HYPERGLYCAEMIC HYPEROSMOLAR NONKETOTIC SYNDROME [None]
